FAERS Safety Report 24090813 (Version 1)
Quarter: 2024Q3

REPORT INFORMATION
  Report Type: Spontaneous
  Country: TH (occurrence: TH)
  Receive Date: 20240715
  Receipt Date: 20240715
  Transmission Date: 20241017
  Serious: Yes (Other)
  Sender: ASTELLAS
  Company Number: TH-ASTELLAS-2024US019759

PATIENT
  Sex: Female

DRUGS (3)
  1. PADCEV [Suspect]
     Active Substance: ENFORTUMAB VEDOTIN-EJFV
     Indication: Product used for unknown indication
     Dosage: UNK UNK, CYCLIC
     Route: 065
  2. PADCEV [Suspect]
     Active Substance: ENFORTUMAB VEDOTIN-EJFV
     Dosage: 1 MG/KG, CYCLIC (50 MG AFTER ROUNDING)
     Route: 065
  3. PADCEV [Suspect]
     Active Substance: ENFORTUMAB VEDOTIN-EJFV
     Dosage: 1 MG/KG, CYCLIC (DAY1, 8 OF 21-DAY)
     Route: 065

REACTIONS (9)
  - Myelosuppression [Unknown]
  - Neutropenia [Unknown]
  - Eczema [Recovering/Resolving]
  - Mucosal inflammation [Recovering/Resolving]
  - Skin reaction [Recovering/Resolving]
  - Peripheral sensory neuropathy [Unknown]
  - Decreased appetite [Recovering/Resolving]
  - Back pain [Recovering/Resolving]
  - Off label use [Unknown]
